FAERS Safety Report 9576705 (Version 1)
Quarter: 2013Q4

REPORT INFORMATION
  Report Type: Spontaneous
  Country: US (occurrence: US)
  Receive Date: 20131001
  Receipt Date: 20131001
  Transmission Date: 20140711
  Serious: No
  Sender: FDA-Public Use
  Company Number: US-AMGEN-USASP2013004546

PATIENT
  Age: 46 Year
  Sex: Male
  Weight: 78.01 kg

DRUGS (5)
  1. ENBREL [Suspect]
     Indication: PRODUCT USED FOR UNKNOWN INDICATION
     Dosage: 50 MG, 2 TIMES/WK
     Route: 058
  2. CENTRUM                            /02217401/ [Concomitant]
     Dosage: UNK
  3. TRIAMCINOLON                       /00031901/ [Concomitant]
     Dosage: 0.1 %, UNK
  4. FISH OIL [Concomitant]
     Dosage: UNK
  5. OMEGA 3                            /01334101/ [Concomitant]
     Dosage: 1200 MG, UNK

REACTIONS (1)
  - Nasopharyngitis [Recovered/Resolved]
